FAERS Safety Report 11284843 (Version 4)
Quarter: 2016Q1

REPORT INFORMATION
  Report Type: Report from Study
  Country: US (occurrence: US)
  Receive Date: 20150720
  Receipt Date: 20160202
  Transmission Date: 20160525
  Serious: Yes (Other)
  Sender: FDA-Public Use
  Company Number: US-AEGERION-AEGR001319

PATIENT

DRUGS (2)
  1. PRAVASTATIN [Concomitant]
     Active Substance: PRAVASTATIN\PRAVASTATIN SODIUM
     Indication: BLOOD CHOLESTEROL INCREASED
     Dosage: UNK
     Route: 065
  2. JUXTAPID [Suspect]
     Active Substance: LOMITAPIDE MESYLATE
     Indication: TYPE IIA HYPERLIPIDAEMIA
     Dosage: 5 MG, UNK
     Route: 048
     Dates: start: 20150308

REACTIONS (4)
  - Malaise [Unknown]
  - Drug dose omission [Unknown]
  - Diarrhoea [Unknown]
  - Neoplasm malignant [Unknown]
